FAERS Safety Report 11618568 (Version 1)
Quarter: 2015Q4

REPORT INFORMATION
  Report Type: Spontaneous
  Country: US (occurrence: US)
  Receive Date: 20151012
  Receipt Date: 20151012
  Transmission Date: 20160304
  Serious: No
  Sender: FDA-Public Use
  Company Number: US-GLENMARK PHARMACEUTICALS INC, USA.-2015GMK019091

PATIENT
  Age: 46 Year
  Sex: Female

DRUGS (7)
  1. RANITIDINE HCL [Suspect]
     Active Substance: RANITIDINE HYDROCHLORIDE
     Indication: MYCOSIS FUNGOIDES
     Dosage: UNK
  2. HYDROCORTISONE BUTYRATE. [Suspect]
     Active Substance: HYDROCORTISONE BUTYRATE
     Indication: MYCOSIS FUNGOIDES
     Dosage: UNK
  3. GABAPENTIN. [Suspect]
     Active Substance: GABAPENTIN
     Indication: MYCOSIS FUNGOIDES
     Dosage: UNK
  4. HYDROXYZINE HYDROCHLORIDE. [Suspect]
     Active Substance: HYDROXYZINE HYDROCHLORIDE
     Indication: MYCOSIS FUNGOIDES
     Dosage: UNK
  5. CETIRIZINE [Suspect]
     Active Substance: CETIRIZINE HYDROCHLORIDE
     Indication: MYCOSIS FUNGOIDES
     Dosage: UNK
     Route: 048
  6. TRIAMCINOLONE [Suspect]
     Active Substance: TRIAMCINOLONE
     Indication: MYCOSIS FUNGOIDES
     Dosage: UNK
  7. CLOBETASOL [Suspect]
     Active Substance: CLOBETASOL
     Indication: MYCOSIS FUNGOIDES
     Dosage: UNK

REACTIONS (1)
  - Off label use [Unknown]
